FAERS Safety Report 7503846-6 (Version None)
Quarter: 2011Q2

REPORT INFORMATION
  Report Type: 
  Country: None (occurrence: None)
  Receive Date: 20110525
  Receipt Date: 20110517
  Transmission Date: 20111010
  Serious: Yes (Disabling, Other)
  Sender: FDA-Public Use
  Company Number: US-MERCK-1102USA00524

PATIENT
  Age: 54 Year
  Sex: Female
  Weight: 64 kg

DRUGS (3)
  1. FOSAMAX [Suspect]
     Indication: OSTEOPOROSIS
     Route: 048
     Dates: start: 20040101, end: 20090413
  2. FOSAMAX [Suspect]
     Indication: BONE DENSITY DECREASED
     Route: 048
     Dates: start: 20040101, end: 20090413
  3. HORMONES (UNSPECIFIED) [Concomitant]
     Route: 065

REACTIONS (5)
  - RESORPTION BONE INCREASED [None]
  - LABORATORY TEST ABNORMAL [None]
  - BONE DISORDER [None]
  - TOOTH DISORDER [None]
  - UPPER LIMB FRACTURE [None]
